FAERS Safety Report 6756155-7 (Version None)
Quarter: 2010Q2

REPORT INFORMATION
  Report Type: 
  Country: None (occurrence: None)
  Receive Date: 20100603
  Receipt Date: 20100603
  Transmission Date: 20101027
  Serious: Yes (Hospitalization)
  Sender: FDA-Public Use
  Company Number: None

PATIENT
  Age: 61 Year
  Sex: Male
  Weight: 86.45 kg

DRUGS (2)
  1. FENTANYL [Suspect]
     Dosage: 200 MCG OTHER TOP
     Route: 061
     Dates: start: 20091001
  2. DIAZEPAM [Suspect]
     Dosage: 2.5 MG QID PO
     Route: 048
     Dates: start: 20091001

REACTIONS (2)
  - CONFUSIONAL STATE [None]
  - MENTAL STATUS CHANGES [None]
